FAERS Safety Report 15699446 (Version 1)
Quarter: 2018Q4

REPORT INFORMATION
  Report Type: Spontaneous
  Country: PL (occurrence: PL)
  Receive Date: 20181207
  Receipt Date: 20181207
  Transmission Date: 20190205
  Serious: Yes (Other)
  Sender: FDA-Public Use
  Company Number: PHHY2018PL175126

PATIENT

DRUGS (1)
  1. SANDOSTATIN LAR DEPOT [Suspect]
     Active Substance: OCTREOTIDE ACETATE
     Indication: NEUROENDOCRINE TUMOUR
     Dosage: 20 TO 30 MG
     Route: 065
     Dates: start: 201502

REACTIONS (18)
  - Tuberculosis [Unknown]
  - Tricuspid valve incompetence [Unknown]
  - Pericardial effusion [Unknown]
  - Hot flush [Unknown]
  - Abdominal pain [Unknown]
  - Hepatic cancer metastatic [Unknown]
  - Polycystic liver disease [Unknown]
  - Metastases to lung [Unknown]
  - Flushing [Unknown]
  - Arrhythmia [Unknown]
  - Diarrhoea [Unknown]
  - Dark circles under eyes [Unknown]
  - Emphysema [Unknown]
  - Arteriosclerosis coronary artery [Unknown]
  - Haematochezia [Unknown]
  - Atrial fibrillation [Unknown]
  - Weight decreased [Unknown]
  - General physical health deterioration [Unknown]
